FAERS Safety Report 18679049 (Version 1)
Quarter: 2020Q4

REPORT INFORMATION
  Report Type: Spontaneous
  Country: DE (occurrence: DE)
  Receive Date: 20201230
  Receipt Date: 20201230
  Transmission Date: 20210114
  Serious: Yes (Disabling)
  Sender: FDA-Public Use
  Company Number: DE-AMGEN-DEUSP2020107233

PATIENT
  Sex: Female

DRUGS (5)
  1. AIMOVIG [Suspect]
     Active Substance: ERENUMAB-AOOE
     Indication: MIGRAINE
     Dosage: 1 DOSAGE FORM, QMO
     Route: 058
     Dates: start: 20200115, end: 20200312
  2. RIZATRIPTAN. [Concomitant]
     Active Substance: RIZATRIPTAN
     Indication: MIGRAINE
     Dosage: 10 MILLIGRAM, QD
     Route: 048
     Dates: start: 20180723
  3. INDOMETACIN [Concomitant]
     Active Substance: INDOMETHACIN
     Indication: PRURITUS
     Dosage: 50 MILLIGRAM, QD
     Route: 048
     Dates: start: 20010301
  4. INDOMETACIN [Concomitant]
     Active Substance: INDOMETHACIN
     Indication: MIGRAINE
     Dosage: UNK
     Route: 065
  5. ETORICOXIB. [Concomitant]
     Active Substance: ETORICOXIB
     Indication: MIGRAINE
     Dosage: 90 MILLIGRAM, QD
     Route: 048
     Dates: start: 20191129

REACTIONS (3)
  - Pruritus [Recovered/Resolved]
  - Liver function test increased [Recovered/Resolved]
  - Immune system disorder [Unknown]

NARRATIVE: CASE EVENT DATE: 20200323
